FAERS Safety Report 18796937 (Version 1)
Quarter: 2021Q1

REPORT INFORMATION
  Report Type: Spontaneous
  Country: DE (occurrence: DE)
  Receive Date: 20210127
  Receipt Date: 20210127
  Transmission Date: 20210419
  Serious: Yes (Hospitalization)
  Sender: FDA-Public Use
  Company Number: NVSC2021DE014348

PATIENT
  Sex: Female
  Weight: 100 kg

DRUGS (1)
  1. RANITIDIN 300 ? 1 A PHARMA [Suspect]
     Active Substance: RANITIDINE HYDROCHLORIDE
     Indication: CHRONIC GASTRITIS
     Dosage: 300 MG
     Route: 065
     Dates: start: 1999, end: 202001

REACTIONS (16)
  - Nausea [Unknown]
  - Transaminases increased [Unknown]
  - Gastritis [Unknown]
  - Dysuria [Unknown]
  - Helicobacter infection [Unknown]
  - Dyspepsia [Unknown]
  - Thrombophlebitis [Unknown]
  - Pain [Unknown]
  - Vascular pain [Unknown]
  - Cystitis [Unknown]
  - Varicose vein [Unknown]
  - Hepatic enzyme abnormal [Recovered/Resolved]
  - Migraine [Unknown]
  - Abdominal pain upper [Unknown]
  - Adverse drug reaction [Unknown]
  - Dizziness [Unknown]

NARRATIVE: CASE EVENT DATE: 2000
